FAERS Safety Report 24561466 (Version 1)
Quarter: 2024Q4

REPORT INFORMATION
  Report Type: Report from Study
  Country: ES (occurrence: ES)
  Receive Date: 20241029
  Receipt Date: 20241029
  Transmission Date: 20250115
  Serious: Yes (Death, Other)
  Sender: JOHNSON AND JOHNSON
  Company Number: ES-JNJFOC-20241065087

PATIENT

DRUGS (3)
  1. DARATUMUMAB [Suspect]
     Active Substance: DARATUMUMAB
     Indication: Plasma cell myeloma
     Route: 065
  2. LENALIDOMIDE [Suspect]
     Active Substance: LENALIDOMIDE
     Indication: Plasma cell myeloma
     Route: 065
  3. DEXAMETHASONE [Suspect]
     Active Substance: DEXAMETHASONE
     Indication: Plasma cell myeloma
     Route: 065

REACTIONS (9)
  - Transitional cell carcinoma [Fatal]
  - Plasma cell myeloma [Fatal]
  - Neutropenia [Unknown]
  - Anaemia [Unknown]
  - Cardiac failure [Unknown]
  - Surgery [Unknown]
  - Respiratory tract infection [Unknown]
  - Diarrhoea [Unknown]
  - Oedema [Unknown]
